FAERS Safety Report 9642477 (Version 2)
Quarter: 2013Q4

REPORT INFORMATION
  Report Type: Spontaneous
  Country: US (occurrence: US)
  Receive Date: 20131024
  Receipt Date: 20131212
  Transmission Date: 20140711
  Serious: No
  Sender: FDA-Public Use
  Company Number: US-009507513-1310USA000411

PATIENT
  Age: 44 Year
  Sex: Female
  Weight: 61.22 kg

DRUGS (3)
  1. DULERA [Suspect]
     Indication: ASTHMA
     Dosage: 2 PUFF TWO TIMES DAILY
     Route: 055
     Dates: start: 20130927, end: 20130930
  2. DULERA [Suspect]
     Dosage: 2 PUFF TWO TIMES DAILY
     Route: 055
     Dates: start: 20131002, end: 20131003
  3. QNASL [Suspect]
     Dosage: UNK
     Dates: start: 201309

REACTIONS (5)
  - Feeling jittery [Unknown]
  - Ageusia [Recovered/Resolved]
  - Chills [Recovered/Resolved]
  - Dysgeusia [Recovered/Resolved]
  - Tremor [Recovered/Resolved]
